FAERS Safety Report 15246418 (Version 1)
Quarter: 2018Q3

REPORT INFORMATION
  Report Type: Spontaneous
  Country: US (occurrence: US)
  Receive Date: 20180806
  Receipt Date: 20180806
  Transmission Date: 20181010
  Serious: Yes (Death)
  Sender: FDA-Public Use
  Company Number: US-BAUSCH-BL-2018-021413

PATIENT
  Sex: Female

DRUGS (1)
  1. ZEGERID [Suspect]
     Active Substance: OMEPRAZOLE\SODIUM BICARBONATE
     Indication: PRODUCT USED FOR UNKNOWN INDICATION
     Dosage: APPROXIMATELY FROM 11/JUN/2006 TO 07/NOV/2011
     Route: 065

REACTIONS (1)
  - Renal failure [Fatal]
